FAERS Safety Report 21130305 (Version 1)
Quarter: 2022Q3

REPORT INFORMATION
  Report Type: Report from Study
  Country: US (occurrence: US)
  Receive Date: 20220726
  Receipt Date: 20220726
  Transmission Date: 20221026
  Serious: Yes (Hospitalization, Other)
  Sender: FDA-Public Use
  Company Number: US-HRAPH01-2022000784

PATIENT
  Age: 64 Year
  Sex: Male

DRUGS (11)
  1. LYSODREN [Suspect]
     Active Substance: MITOTANE
     Indication: Adrenal gland cancer
     Dosage: 1500 MG THREE TIMES A DAY
     Route: 048
     Dates: start: 20220105
  2. ELIQUIS [Concomitant]
     Active Substance: APIXABAN
     Indication: Product used for unknown indication
  3. FINASTERIDE [Concomitant]
     Active Substance: FINASTERIDE
     Indication: Product used for unknown indication
  4. FLOMAX [Concomitant]
     Active Substance: TAMSULOSIN HYDROCHLORIDE
     Indication: Product used for unknown indication
  5. JANUVIA TAB 50MG [Concomitant]
     Indication: Product used for unknown indication
  6. MEBENDAZOLE POW [Concomitant]
     Indication: Product used for unknown indication
  7. METFORMIN TAB 500MG; METFORMIN TAB 500MG ER [Concomitant]
     Indication: Product used for unknown indication
  8. OMEPRAZOLE [Concomitant]
     Active Substance: OMEPRAZOLE
     Indication: Product used for unknown indication
  9. ONDANSETRON TAB 8MG ODT [Concomitant]
     Indication: Product used for unknown indication
  10. SAVAYSA TAB 60MG [Concomitant]
     Indication: Product used for unknown indication
  11. SIMVASTATIN TAB 20MG [Concomitant]
     Indication: Product used for unknown indication

REACTIONS (1)
  - Pulmonary embolism [Not Recovered/Not Resolved]

NARRATIVE: CASE EVENT DATE: 20220716
